FAERS Safety Report 5236640-X (Version None)
Quarter: 2007Q1

REPORT INFORMATION
  Report Type: 
  Country: None (occurrence: None)
  Receive Date: 20070208
  Receipt Date: 20070129
  Transmission Date: 20070707
  Serious: Yes (Other)
  Sender: FDA-Public Use
  Company Number: SPV1-2007-00399

PATIENT
  Age: 15 Year
  Sex: Male
  Weight: 104.3 kg

DRUGS (1)
  1. DAYTRANA [Suspect]
     Indication: ATTENTION DEFICIT/HYPERACTIVITY DISORDER
     Dosage: 20 MG TRANSDERMAL
     Route: 062
     Dates: start: 20061201, end: 20070101

REACTIONS (1)
  - CONVULSION [None]
